FAERS Safety Report 24539525 (Version 1)
Quarter: 2024Q4

REPORT INFORMATION
  Report Type: Spontaneous
  Country: SI (occurrence: SI)
  Receive Date: 20241023
  Receipt Date: 20241023
  Transmission Date: 20250115
  Serious: Yes (Other)
  Sender: FRESENIUS KABI
  Company Number: SI-JNJFOC-20240979965

PATIENT
  Age: 72 Year
  Sex: Male

DRUGS (5)
  1. DEXAMETHASONE [Suspect]
     Active Substance: DEXAMETHASONE
     Indication: Plasma cell myeloma
     Dosage: FORM OF ADMIN: UNKNOWN
     Route: 065
  2. DARZALEX FASPRO [Suspect]
     Active Substance: DARATUMUMAB\HYALURONIDASE-FIHJ
     Indication: Plasma cell myeloma
     Dosage: FOA: SOLUTION FOR INJECTION
     Route: 058
  3. KYPROLIS [Suspect]
     Active Substance: CARFILZOMIB
     Indication: Plasma cell myeloma
     Dosage: FOA: UNKNOWN
     Route: 065
  4. MONTELUKAST [MONTELUKAST] [Concomitant]
     Indication: Product used for unknown indication
     Dosage: FOA: UNKNOWN
     Route: 065
  5. TAVEGYL [CLEMASTINE FUMARATE] [Concomitant]
     Indication: Product used for unknown indication
     Dosage: FOA: UNKNOWN
     Route: 065

REACTIONS (6)
  - Hypotension [Recovered/Resolved]
  - Oxygen saturation decreased [Recovered/Resolved]
  - Hypersensitivity [Unknown]
  - Pyrexia [Recovered/Resolved]
  - Heart rate increased [Recovered/Resolved]
  - Dyspnoea [Recovered/Resolved]
